FAERS Safety Report 5067193-7 (Version None)
Quarter: 2006Q3

REPORT INFORMATION
  Report Type: 
  Country: None (occurrence: None)
  Receive Date: 20060726
  Receipt Date: 20060718
  Transmission Date: 20061208
  Serious: Yes (Disabling)
  Sender: FDA-Public Use
  Company Number: DEWYE560218APR06

PATIENT
  Sex: Male

DRUGS (3)
  1. VENLAFAXINE HCL [Suspect]
     Indication: DEPRESSION
     Dosage: 150 MG 1X PER 1 DAY ORAL; 150 MG 1X PER 1 DAY; 225 MG, PER DAY ORAL
     Route: 048
     Dates: start: 20050601, end: 20050623
  2. VENLAFAXINE HCL [Suspect]
     Indication: DEPRESSION
     Dosage: 150 MG 1X PER 1 DAY ORAL; 150 MG 1X PER 1 DAY; 225 MG, PER DAY ORAL
     Route: 048
     Dates: start: 20050624, end: 20051001
  3. VENLAFAXINE HCL [Suspect]
     Indication: DEPRESSION
     Dosage: 150 MG 1X PER 1 DAY ORAL; 150 MG 1X PER 1 DAY; 225 MG, PER DAY ORAL
     Route: 048
     Dates: start: 20051001

REACTIONS (3)
  - CONDITION AGGRAVATED [None]
  - OBESITY [None]
  - SPINAL DISORDER [None]
